FAERS Safety Report 24132562 (Version 2)
Quarter: 2024Q3

REPORT INFORMATION
  Report Type: Spontaneous
  Country: US (occurrence: US)
  Receive Date: 20240724
  Receipt Date: 20240729
  Transmission Date: 20241017
  Serious: No
  Sender: AMGEN
  Company Number: US-AMGEN-USASP2024145789

PATIENT
  Sex: Female
  Weight: 129 kg

DRUGS (1)
  1. TEPEZZA [Suspect]
     Active Substance: TEPROTUMUMAB-TRBW
     Indication: Product used for unknown indication
     Dosage: 500 MILLIGRAM (INFUSE 54.2 ML = 2580 MG OF TEPEZZA INTRAVENOUSLY FOR DOSES 3-8. INFUSE FINAL 6 DOSES
     Route: 065

REACTIONS (2)
  - Therapeutic product effect incomplete [Unknown]
  - Constipation [Unknown]
